FAERS Safety Report 8898016 (Version 1)
Quarter: 2012Q4

REPORT INFORMATION
  Report Type: 
  Country: US (occurrence: US)
  Receive Date: 20121109
  Receipt Date: 20121109
  Transmission Date: 20130627
  Serious: No
  Sender: FDA-Public Use
  Company Number: US-009507513-1211USA002688

PATIENT

DRUGS (2)
  1. NEXPLANON [Suspect]
     Dosage: UNK
     Dates: start: 20121102, end: 20121102
  2. NEXPLANON [Suspect]
     Dosage: new nexplanon was added on the same day

REACTIONS (3)
  - Device failure [Unknown]
  - Complication of device insertion [Unknown]
  - No adverse event [Unknown]
